FAERS Safety Report 21259079 (Version 3)
Quarter: 2023Q4

REPORT INFORMATION
  Report Type: Spontaneous
  Country: BS (occurrence: BS)
  Receive Date: 20220826
  Receipt Date: 20231024
  Transmission Date: 20240109
  Serious: Yes (Other)
  Sender: FDA-Public Use
  Company Number: BS-TAKEDA-2021TUS011215

PATIENT
  Sex: Male
  Weight: 96.14 kg

DRUGS (1)
  1. PONATINIB [Suspect]
     Active Substance: PONATINIB
     Indication: Chronic myeloid leukaemia
     Dosage: 45 MILLIGRAM
     Route: 065

REACTIONS (6)
  - Peripheral nerve injury [Unknown]
  - COVID-19 [Unknown]
  - Splenomegaly [Unknown]
  - Nerve injury [Not Recovered/Not Resolved]
  - Fall [Unknown]
  - Bone pain [Unknown]
